FAERS Safety Report 17092791 (Version 1)
Quarter: 2019Q4

REPORT INFORMATION
  Report Type: Spontaneous
  Country: US (occurrence: US)
  Receive Date: 20191101
  Receipt Date: 20191101
  Transmission Date: 20200122
  Serious: Yes (Hospitalization)
  Sender: FDA-Public Use
  Company Number: None

PATIENT
  Age: 57 Year
  Sex: Female

DRUGS (1)
  1. CAPECITABINE TAB 500MG [Suspect]
     Active Substance: CAPECITABINE
     Route: 048
     Dates: start: 20191022

REACTIONS (6)
  - Erythema [None]
  - Insomnia [None]
  - Diarrhoea [None]
  - Paraesthesia [None]
  - Abdominal pain [None]
  - Dry skin [None]

NARRATIVE: CASE EVENT DATE: 20191022
